FAERS Safety Report 23952669 (Version 3)
Quarter: 2024Q3

REPORT INFORMATION
  Report Type: Spontaneous
  Country: US (occurrence: US)
  Receive Date: 20240607
  Receipt Date: 20240919
  Transmission Date: 20241016
  Serious: No
  Sender: PFIZER
  Company Number: US-PFIZER INC-PV202400065711

PATIENT
  Age: 14 Year
  Sex: Male

DRUGS (1)
  1. GENOTROPIN [Suspect]
     Active Substance: SOMATROPIN
     Indication: Short stature
     Dosage: UNK, ALTERNATE DAY (DAILY DOSE ALTERNATE 1.6 AND 1.4 MG/DAY 7 DAYS/WEEK)

REACTIONS (4)
  - Injection site pain [Unknown]
  - Device leakage [Unknown]
  - Device malfunction [Unknown]
  - Incorrect dose administered by device [Unknown]
